FAERS Safety Report 10534848 (Version 7)
Quarter: 2014Q4

REPORT INFORMATION
  Report Type: Report from Study
  Country: US (occurrence: US)
  Receive Date: 20141022
  Receipt Date: 20141208
  Transmission Date: 20150529
  Serious: Yes (Hospitalization, Other)
  Sender: FDA-Public Use
  Company Number: US-BAYER-2014-142143

PATIENT
  Age: 37 Year
  Sex: Female
  Weight: 98 kg

DRUGS (10)
  1. TRACLEER [Concomitant]
     Active Substance: BOSENTAN\BOSENTAN MONOHYDRATE
     Dosage: UNK
  2. REVATIO [Concomitant]
     Active Substance: SILDENAFIL CITRATE
     Dosage: UNK
  3. ADEMPAS [Suspect]
     Active Substance: RIOCIGUAT
     Indication: PULMONARY ARTERIAL HYPERTENSION
     Dosage: 1 MG, TID
     Route: 048
     Dates: start: 20140929
  4. REMODULIN [Suspect]
     Active Substance: TREPROSTINIL
     Indication: COR PULMONALE CHRONIC
     Dosage: 0.041 ?G/KG, UNK
     Route: 041
     Dates: start: 20140328
  5. ASPIRIN. [Concomitant]
     Active Substance: ASPIRIN
  6. ADEMPAS [Suspect]
     Active Substance: RIOCIGUAT
     Indication: PULMONARY ARTERIAL HYPERTENSION
     Dosage: 0.5 MG, TID
     Route: 048
     Dates: start: 20140822
  7. ADEMPAS [Suspect]
     Active Substance: RIOCIGUAT
     Indication: PULMONARY ARTERIAL HYPERTENSION
     Dosage: 1 MG, TID
     Route: 048
     Dates: start: 20140924, end: 20140926
  8. ADEMPAS [Suspect]
     Active Substance: RIOCIGUAT
     Indication: PULMONARY ARTERIAL HYPERTENSION
     Dosage: 1 MG, TID
     Route: 048
     Dates: start: 20140828
  9. REMODULIN [Suspect]
     Active Substance: TREPROSTINIL
     Indication: PULMONARY HYPERTENSION
     Dosage: 18.8 NG/KG/MIN AT 5 MG/ML CONCENTRATION CONTINUOUSLY
     Route: 041
     Dates: start: 20140328
  10. REMODULIN [Suspect]
     Active Substance: TREPROSTINIL
     Indication: COR PULMONALE CHRONIC
     Dosage: 37.75 NG/KG/MIN AT 10 MG/ML CONCENTRATION CONTINUOUSLY
     Route: 058
     Dates: start: 20140328

REACTIONS (12)
  - Pulmonary arterial hypertension [None]
  - Nausea [None]
  - Therapy cessation [None]
  - Diarrhoea [Unknown]
  - Headache [Unknown]
  - Dehydration [Unknown]
  - Vomiting [None]
  - Diarrhoea [None]
  - Fatigue [None]
  - Vomiting [Unknown]
  - Dehydration [None]
  - Dyspnoea [None]

NARRATIVE: CASE EVENT DATE: 201409
